FAERS Safety Report 10544900 (Version 1)
Quarter: 2014Q4

REPORT INFORMATION
  Report Type: Spontaneous
  Country: US (occurrence: US)
  Receive Date: 20141027
  Receipt Date: 20141027
  Transmission Date: 20150529
  Serious: No
  Sender: FDA-Public Use
  Company Number: US-BAYER-2014-154950

PATIENT
  Age: 60 Year
  Sex: Female
  Weight: 75 kg

DRUGS (5)
  1. FLAXSEED [Concomitant]
     Active Substance: FLAX SEED
  2. GLUCOSAMINE [Concomitant]
     Active Substance: GLUCOSAMINE
  3. ALEVE [Suspect]
     Active Substance: NAPROXEN SODIUM
     Indication: ARTHRITIS
     Dosage: 1 DF, QD
     Dates: start: 201402
  4. TURMERIC [Concomitant]
     Active Substance: TURMERIC
  5. METFORMIN [Concomitant]
     Active Substance: METFORMIN HYDROCHLORIDE

REACTIONS (1)
  - Incorrect drug administration duration [None]

NARRATIVE: CASE EVENT DATE: 201402
